FAERS Safety Report 6759582-7 (Version None)
Quarter: 2010Q2

REPORT INFORMATION
  Report Type: 
  Country: None (occurrence: None)
  Receive Date: 20100608
  Receipt Date: 20100524
  Transmission Date: 20101027
  Serious: Yes (Other)
  Sender: FDA-Public Use
  Company Number: GB-MYLANLABS-2010S1009217

PATIENT
  Age: 65 Year
  Sex: Female

DRUGS (4)
  1. GABAPENTIN [Suspect]
     Indication: NEURALGIA
     Route: 048
     Dates: start: 20091001
  2. GABAPENTIN [Suspect]
     Route: 048
     Dates: start: 20100225
  3. GABAPENTIN [Suspect]
     Route: 048
     Dates: end: 20100330
  4. TARCEVA [Suspect]
     Indication: LUNG ADENOCARCINOMA
     Route: 048
     Dates: start: 20091209

REACTIONS (6)
  - DIARRHOEA [None]
  - DRUG INTERACTION [None]
  - FOLLICULITIS [None]
  - MUCOSAL INFLAMMATION [None]
  - ONYCHALGIA [None]
  - RASH [None]
